FAERS Safety Report 7974946-1 (Version None)
Quarter: 2011Q4

REPORT INFORMATION
  Report Type: 
  Country: None (occurrence: None)
  Receive Date: 20111213
  Receipt Date: 20111018
  Transmission Date: 20120403
  Serious: No
  Sender: FDA-Public Use
  Company Number: US-AMGEN-USASP2011053738

PATIENT
  Sex: Female

DRUGS (10)
  1. OMEGA-3                            /01168901/ [Concomitant]
  2. XANAX [Concomitant]
  3. CRESTOR [Concomitant]
  4. ENBREL [Suspect]
     Indication: RHEUMATOID ARTHRITIS
     Dosage: 50 MG, QWK
     Dates: start: 20100101
  5. ADVAIR DISKUS 100/50 [Concomitant]
  6. LEXAPRO [Concomitant]
  7. SINGULAIR [Concomitant]
  8. METOPROLOL TARTRATE [Concomitant]
  9. MICARDIS [Concomitant]
  10. PRILOSEC [Concomitant]

REACTIONS (1)
  - BLOOD PRESSURE INCREASED [None]
